FAERS Safety Report 19769176 (Version 1)
Quarter: 2021Q3

REPORT INFORMATION
  Report Type: Spontaneous
  Country: JP (occurrence: JP)
  Receive Date: 20210831
  Receipt Date: 20210831
  Transmission Date: 20211014
  Serious: Yes (Other)
  Sender: FDA-Public Use
  Company Number: NVSJ2021JP012808

PATIENT
  Age: 87 Year
  Sex: Male

DRUGS (1)
  1. ENERZAIR [Suspect]
     Active Substance: GLYCOPYRROLATE\INDACATEROL\MOMETASONE FUROATE
     Indication: ASTHMA
     Dosage: 1DF:INDACATEROL ACETATE150UG,GLYCOPYRRONIUM BROMIDE50UG,MOMETASONE FUROATE160UG
     Route: 055

REACTIONS (1)
  - Urinary retention [Recovered/Resolved]
